FAERS Safety Report 9355946 (Version 2)
Quarter: 2013Q3

REPORT INFORMATION
  Report Type: Spontaneous
  Country: US (occurrence: US)
  Receive Date: 20130619
  Receipt Date: 20130814
  Transmission Date: 20140515
  Serious: Yes (Hospitalization, Other)
  Sender: FDA-Public Use
  Company Number: US-ASTRAZENECA-2013SE42538

PATIENT
  Age: 85 Year
  Sex: Male
  Weight: 88.5 kg

DRUGS (10)
  1. ATACAND [Suspect]
     Indication: BLOOD PRESSURE ABNORMAL
     Route: 048
     Dates: end: 2013
  2. ATACAND [Suspect]
     Indication: BLOOD PRESSURE ABNORMAL
     Route: 048
  3. OMEPRAZOLE [Suspect]
     Indication: DYSPEPSIA
     Route: 048
  4. LOSARTAN POTASSIUM [Suspect]
     Indication: BLOOD PRESSURE ABNORMAL
     Route: 065
     Dates: start: 2013, end: 2013
  5. ALOPURINOL [Concomitant]
     Indication: GOUT
  6. CITALOPRAM HBR [Concomitant]
     Indication: MENTAL DISORDER
  7. ASPIRIN [Concomitant]
  8. COUMADIN [Concomitant]
  9. OSTEOBIFLEX [Concomitant]
     Indication: BONE DISORDER
     Dosage: DAILY
  10. MULTI VITAMIN [Concomitant]
     Dosage: DAILY

REACTIONS (4)
  - Fall [Unknown]
  - Blood pressure increased [Recovered/Resolved]
  - Venous thrombosis limb [Unknown]
  - Intentional drug misuse [Unknown]
